FAERS Safety Report 16281151 (Version 2)
Quarter: 2019Q3

REPORT INFORMATION
  Report Type: Spontaneous
  Country: US (occurrence: US)
  Receive Date: 20190507
  Receipt Date: 20190722
  Transmission Date: 20191004
  Serious: Yes (Hospitalization)
  Sender: FDA-Public Use
  Company Number: US-TEVA-2019-US-1046489

PATIENT
  Sex: Female

DRUGS (1)
  1. CLONIDINE. [Suspect]
     Active Substance: CLONIDINE
     Dosage: .3 MILLIGRAM DAILY;
     Route: 062

REACTIONS (5)
  - Blood pressure increased [Unknown]
  - Skin burning sensation [Unknown]
  - Product adhesion issue [Unknown]
  - Product quality issue [Unknown]
  - Product communication issue [Unknown]

NARRATIVE: CASE EVENT DATE: 2018
